FAERS Safety Report 9165162 (Version 2)
Quarter: 2019Q3

REPORT INFORMATION
  Report Type: Other
  Country: ES (occurrence: ES)
  Receive Date: 20130315
  Receipt Date: 20190709
  Transmission Date: 20191005
  Serious: Yes (Hospitalization, Other)
  Sender: FDA-Public Use
  Company Number: ES-ASTELLAS-2013EU002363

PATIENT
  Age: 39 Year
  Sex: Female

DRUGS (2)
  1. TACROLIMUS SYSTEMIC [Suspect]
     Active Substance: TACROLIMUS
     Indication: HEART AND LUNG TRANSPLANT
     Dosage: UNK UNK, UNKNOWN FREQ.
     Route: 065
     Dates: start: 2009
  2. IMUREL                             /00001501/ [Suspect]
     Active Substance: AZATHIOPRINE SODIUM
     Indication: SECONDARY IMMUNODEFICIENCY
     Dosage: UNK UNK, UNKNOWN FREQ.
     Route: 065
     Dates: start: 2009

REACTIONS (9)
  - Premature delivery [Unknown]
  - Hypertensive crisis [Unknown]
  - Coarctation of the aorta [Unknown]
  - Renal failure [Unknown]
  - Product use in unapproved indication [Unknown]
  - Premature labour [Unknown]
  - Acute pulmonary oedema [Unknown]
  - Maternal exposure during pregnancy [Recovered/Resolved]
  - Diarrhoea [Unknown]

NARRATIVE: CASE EVENT DATE: 2011
